FAERS Safety Report 4928886-2 (Version None)
Quarter: 2006Q1

REPORT INFORMATION
  Report Type: 
  Country: None (occurrence: None)
  Receive Date: 20060223
  Receipt Date: 20060210
  Transmission Date: 20060701
  Serious: Yes (Death, Other)
  Sender: FDA-Public Use
  Company Number: 2006-US-00680

PATIENT
  Age: 58 Year
  Sex: Male

DRUGS (2)
  1. CLOZAPINE [Suspect]
     Indication: ACUTE PSYCHOSIS
     Dosage: 50 MG, QD, ORAL
     Route: 048
     Dates: start: 20010201, end: 20051201
  2. CLOZAPINE [Suspect]
     Indication: SCHIZOPHRENIA
     Dosage: 50 MG, QD, ORAL
     Route: 048
     Dates: start: 20010201, end: 20051201

REACTIONS (1)
  - COLON CANCER [None]
